FAERS Safety Report 9197652 (Version 2)
Quarter: 2013Q3

REPORT INFORMATION
  Report Type: Spontaneous
  Country: US (occurrence: US)
  Receive Date: 20130328
  Receipt Date: 20130826
  Transmission Date: 20140515
  Serious: Yes (Hospitalization)
  Sender: FDA-Public Use
  Company Number: US-BAYER-2013-037202

PATIENT
  Age: 46 Year
  Sex: Female
  Weight: 72.56 kg

DRUGS (10)
  1. YASMIN [Suspect]
     Indication: ACNE
     Dosage: UNK
     Dates: start: 200307, end: 200602
  2. YASMIN [Suspect]
     Indication: ENDOMETRIOSIS
  3. PLAVIX [Concomitant]
     Indication: CEREBROVASCULAR ACCIDENT
  4. TOPIRAMATE [Concomitant]
  5. DARVOCET-N [Concomitant]
     Indication: MIGRAINE
  6. IMITREX [Concomitant]
     Indication: MIGRAINE
     Dosage: UNK
     Dates: end: 200307
  7. TOPAMAX [Concomitant]
     Indication: MIGRAINE
  8. VITAMIN C [Concomitant]
  9. IBUPROFEN [Concomitant]
  10. MOTRIN [Concomitant]

REACTIONS (13)
  - Cerebrovascular accident [None]
  - Injury [None]
  - Pain [None]
  - General physical health deterioration [None]
  - Muscular weakness [None]
  - Visual impairment [None]
  - Balance disorder [None]
  - Speech disorder [None]
  - Aphasia [None]
  - Emotional distress [None]
  - Anxiety [None]
  - Anhedonia [None]
  - Pain [None]
